FAERS Safety Report 6437426-0 (Version None)
Quarter: 2009Q4

REPORT INFORMATION
  Report Type: 
  Country: None (occurrence: None)
  Receive Date: 20091112
  Receipt Date: 20081007
  Transmission Date: 20100525
  Serious: No
  Sender: FDA-Public Use
  Company Number: US-ASTRAZENECA-2009UW15392

PATIENT
  Age: 47 Year
  Sex: Male

DRUGS (4)
  1. PRILOSEC OTC [Suspect]
     Indication: GASTROOESOPHAGEAL REFLUX DISEASE
     Dosage: 1 TABLET, 1 /DAY
     Route: 048
     Dates: start: 20080929, end: 20081004
  2. NASONEX [Concomitant]
  3. VITAMIN E [Concomitant]
  4. ASPIRIN [Concomitant]

REACTIONS (5)
  - CONDITION AGGRAVATED [None]
  - DYSPHAGIA [None]
  - FLATULENCE [None]
  - LABELLED DRUG-DISEASE INTERACTION MEDICATION ERROR [None]
  - OESOPHAGEAL STENOSIS [None]
